FAERS Safety Report 16334635 (Version 1)
Quarter: 2019Q2

REPORT INFORMATION
  Report Type: Spontaneous
  Country: PT (occurrence: PT)
  Receive Date: 20190520
  Receipt Date: 20190520
  Transmission Date: 20190711
  Serious: Yes (Other)
  Sender: FDA-Public Use
  Company Number: PT-ALLERGAN-1920982US

PATIENT
  Sex: Female
  Weight: 89 kg

DRUGS (2)
  1. FOSFOMYCIN TROMETHAMINE - BP [Suspect]
     Active Substance: FOSFOMYCIN TROMETHAMINE
     Indication: URINARY TRACT INFECTION
     Dosage: UNK, SINGLE
     Route: 048
     Dates: start: 20190328, end: 20190328
  2. FOLIC ACID. [Concomitant]
     Active Substance: FOLIC ACID

REACTIONS (2)
  - Exposure during pregnancy [Unknown]
  - Laryngeal oedema [Recovered/Resolved]

NARRATIVE: CASE EVENT DATE: 20190328
